FAERS Safety Report 6368350-X (Version None)
Quarter: 2009Q3

REPORT INFORMATION
  Report Type: 
  Country: None (occurrence: None)
  Receive Date: 20090922
  Receipt Date: 20090921
  Transmission Date: 20100115
  Serious: Yes (Other)
  Sender: FDA-Public Use
  Company Number: TW-ROXANE LABORATORIES, INC.-2009-RO-00962RO

PATIENT
  Age: 45 Year
  Sex: Female

DRUGS (7)
  1. CYCLOPHOSPHAMIDE [Suspect]
     Indication: DERMATOMYOSITIS
     Route: 042
  2. CYCLOPHOSPHAMIDE [Suspect]
     Indication: INTERSTITIAL LUNG DISEASE
  3. METHYLPREDNISOLONE [Suspect]
     Indication: DERMATOMYOSITIS
  4. METHYLPREDNISOLONE [Suspect]
  5. LEVOFLOXACIN [Concomitant]
     Indication: MYCOBACTERIUM AVIUM COMPLEX INFECTION
  6. RIFABUTIN [Concomitant]
     Indication: MYCOBACTERIUM AVIUM COMPLEX INFECTION
  7. ETHAMBUTOL [Concomitant]
     Indication: MYCOBACTERIUM AVIUM COMPLEX INFECTION

REACTIONS (4)
  - DYSPNOEA [None]
  - MYCOBACTERIUM AVIUM COMPLEX INFECTION [None]
  - PLEURAL EFFUSION [None]
  - PLEURISY [None]
